FAERS Safety Report 5045339-4 (Version None)
Quarter: 2006Q3

REPORT INFORMATION
  Report Type: 
  Country: None (occurrence: None)
  Receive Date: 20060707
  Receipt Date: 20060131
  Transmission Date: 20061208
  Serious: No
  Sender: FDA-Public Use
  Company Number: US-GLAXOSMITHKLINE-A0591685A

PATIENT
  Age: 59 Year
  Sex: Male

DRUGS (1)
  1. LOTRONEX [Suspect]
     Dosage: 1MG TWICE PER DAY
     Route: 048
     Dates: end: 20060122

REACTIONS (1)
  - DRUG INEFFECTIVE [None]
